FAERS Safety Report 6412478-2 (Version None)
Quarter: 2009Q4

REPORT INFORMATION
  Report Type: 
  Country: None (occurrence: None)
  Receive Date: 20091023
  Receipt Date: 20091021
  Transmission Date: 20100525
  Serious: No
  Sender: FDA-Public Use
  Company Number: US-JNJFOC-20090907400

PATIENT
  Sex: Female
  Weight: 60.87 kg

DRUGS (2)
  1. INFLIXIMAB [Suspect]
     Route: 042
     Dates: start: 20070506, end: 20090702
  2. INFLIXIMAB [Suspect]
     Indication: INFLAMMATORY BOWEL DISEASE
     Route: 042
     Dates: start: 20070506, end: 20090702

REACTIONS (1)
  - PSORIASIS [None]
